FAERS Safety Report 24360350 (Version 1)
Quarter: 2024Q3

REPORT INFORMATION
  Report Type: Report from Study
  Country: US (occurrence: US)
  Receive Date: 20240925
  Receipt Date: 20240925
  Transmission Date: 20241017
  Serious: Yes (Other)
  Sender: MALLINCKRODT
  Company Number: US-MALLINCKRODT-MNK202405141

PATIENT
  Sex: Male

DRUGS (7)
  1. CORTICOTROPIN [Suspect]
     Active Substance: CORTICOTROPIN
     Indication: Polymyositis
     Dosage: UNKNOWN
  2. CORTICOTROPIN [Suspect]
     Active Substance: CORTICOTROPIN
     Dosage: UNKNOWN
  3. CORTICOTROPIN [Suspect]
     Active Substance: CORTICOTROPIN
  4. INSULIN NOS [Concomitant]
     Active Substance: INSULIN NOS
     Dosage: UNK
  5. METHOTREXATE [Concomitant]
     Active Substance: METHOTREXATE
     Dosage: UNKNOWN
  6. RITUXAN [Concomitant]
     Active Substance: RITUXIMAB
     Dates: start: 20240905
  7. FOLIC ACID [Concomitant]
     Active Substance: FOLIC ACID
     Dosage: UNKNOWN

REACTIONS (3)
  - Diabetes mellitus [Unknown]
  - Asthenia [Recovered/Resolved]
  - Muscular weakness [Not Recovered/Not Resolved]
